FAERS Safety Report 18456649 (Version 1)
Quarter: 2020Q4

REPORT INFORMATION
  Report Type: Report from Study
  Country: KR (occurrence: KR)
  Receive Date: 20201103
  Receipt Date: 20201103
  Transmission Date: 20210114
  Serious: Yes (Hospitalization, Other)
  Sender: FDA-Public Use
  Company Number: KR-JNJFOC-A-CH2020-208647

PATIENT
  Age: 53 Year
  Sex: Female

DRUGS (3)
  1. BOSENTAN. [Suspect]
     Active Substance: BOSENTAN
     Indication: PULMONARY ARTERIAL HYPERTENSION
     Dosage: 2 DF, BID
     Route: 048
  2. OPSUMIT [Suspect]
     Active Substance: MACITENTAN
     Indication: RIGHT-TO-LEFT CARDIAC SHUNT
     Route: 048
  3. ASPRIN [Concomitant]
     Active Substance: ASPIRIN

REACTIONS (3)
  - Intervertebral disc protrusion [Unknown]
  - Pulmonary thrombosis [Not Recovered/Not Resolved]
  - Dyspnoea [Unknown]

NARRATIVE: CASE EVENT DATE: 2020
